FAERS Safety Report 6252828-3 (Version None)
Quarter: 2009Q3

REPORT INFORMATION
  Report Type: 
  Country: None (occurrence: None)
  Receive Date: 20090701
  Receipt Date: 20090623
  Transmission Date: 20100115
  Serious: Yes (Other)
  Sender: FDA-Public Use
  Company Number: US-ELI_LILLY_AND_COMPANY-US200905001044

PATIENT
  Sex: Female
  Weight: 90.249 kg

DRUGS (11)
  1. BYETTA [Suspect]
     Indication: TYPE 2 DIABETES MELLITUS
     Dosage: UNK, UNKNOWN
     Route: 065
     Dates: start: 20060101
  2. BYETTA [Suspect]
     Dosage: 5 UG, 2/D
     Route: 058
     Dates: start: 20080917, end: 20081017
  3. BYETTA [Suspect]
     Dosage: 10 UG, 2/D
     Route: 065
     Dates: start: 20081017, end: 20090115
  4. GLUCOPHAGE [Concomitant]
     Dosage: 850 MG, 3/D
     Route: 065
  5. TRICOR [Concomitant]
     Dosage: 145 MG, DAILY (1/D)
     Route: 065
  6. NEXIUM [Concomitant]
     Dosage: UNK, UNKNOWN
     Route: 065
  7. CELEXA [Concomitant]
     Dosage: UNK, UNKNOWN
     Route: 065
  8. ALBUTEROL [Concomitant]
     Dosage: UNK, UNKNOWN
     Route: 065
  9. LISINOPRIL [Concomitant]
     Dosage: UNK, UNKNOWN
     Route: 065
  10. ESTROGEN NOS [Concomitant]
     Dosage: UNK, UNKNOWN
     Route: 065
  11. PROGESTERONE [Concomitant]
     Dosage: UNK, UNKNOWN
     Route: 065

REACTIONS (3)
  - NAUSEA [None]
  - PANCREATITIS [None]
  - WEIGHT DECREASED [None]
